FAERS Safety Report 7257180-2 (Version None)
Quarter: 2011Q1

REPORT INFORMATION
  Report Type: 
  Country: None (occurrence: None)
  Receive Date: 20110129
  Receipt Date: 20100720
  Transmission Date: 20110831
  Serious: No
  Sender: FDA-Public Use
  Company Number: US-ABBOTT-10P-163-0658612-00

PATIENT
  Sex: Female

DRUGS (16)
  1. DARVOCET-N 100 [Concomitant]
     Indication: BACK DISORDER
  2. REFRESH TEARS [Concomitant]
     Indication: DRY EYE
  3. HUMIRA [Suspect]
     Indication: CROHN'S DISEASE
     Route: 058
     Dates: start: 20100709
  4. AMLODIPINE [Concomitant]
     Indication: PRODUCT USED FOR UNKNOWN INDICATION
  5. OMEPRAZOLE [Concomitant]
     Indication: GASTROOESOPHAGEAL REFLUX DISEASE
     Dosage: DAILY
  6. NASONEX [Concomitant]
     Indication: NASAL CONGESTION
     Dosage: 1 SPRAY NOSTRIL
     Route: 050
  7. XANAX [Concomitant]
     Indication: ANXIETY
  8. OMEPRAZOLE [Concomitant]
     Indication: PRODUCT USED FOR UNKNOWN INDICATION
  9. CREAM [Concomitant]
     Indication: PSORIASIS
     Route: 061
  10. CREAM [Concomitant]
     Indication: ERYTHEMA
  11. DARVOCET-N 100 [Concomitant]
     Indication: ARTHROPATHY
  12. FISH OIL [Concomitant]
     Indication: PRODUCT USED FOR UNKNOWN INDICATION
     Dosage: DAILY
  13. ZYRTEC [Concomitant]
     Indication: HYPERSENSITIVITY
  14. XANAX [Concomitant]
     Indication: PRODUCT USED FOR UNKNOWN INDICATION
  15. LIPITOR [Concomitant]
     Indication: BLOOD CHOLESTEROL INCREASED
     Dosage: DAILY
  16. AMLODIPINE BESYLATE [Concomitant]
     Indication: HYPERTENSION
     Dosage: DAILY

REACTIONS (3)
  - OEDEMA PERIPHERAL [None]
  - JOINT SWELLING [None]
  - FEELING ABNORMAL [None]
